FAERS Safety Report 7073863-1 (Version None)
Quarter: 2010Q4

REPORT INFORMATION
  Report Type: 
  Country: None (occurrence: None)
  Receive Date: 20101029
  Receipt Date: 20100819
  Transmission Date: 20110411
  Serious: No
  Sender: FDA-Public Use
  Company Number: A0877965A

PATIENT
  Age: 39 Year
  Sex: Male

DRUGS (2)
  1. ADVAIR DISKUS 100/50 [Suspect]
     Dates: start: 20080124
  2. COREG [Suspect]
     Route: 048
     Dates: start: 20080124

REACTIONS (2)
  - COUGH [None]
  - MALAISE [None]
